FAERS Safety Report 9496565 (Version 5)
Quarter: 2013Q4

REPORT INFORMATION
  Report Type: Spontaneous
  Country: US (occurrence: US)
  Receive Date: 20130904
  Receipt Date: 20131125
  Transmission Date: 20140711
  Serious: No
  Sender: FDA-Public Use
  Company Number: US-VERTEX PHARMACEUTICALS INC-2013-009250

PATIENT
  Age: 49 Year
  Sex: Male
  Weight: 108.84 kg

DRUGS (3)
  1. INCIVEK [Suspect]
     Indication: HEPATITIS C
     Dosage: 750 MG, TID
     Route: 048
     Dates: start: 20130828, end: 201310
  2. RIBAVIRIN [Suspect]
     Indication: HEPATITIS C
     Dosage: 1 TAB BID
     Route: 048
     Dates: start: 20130828
  3. PEGASYS [Suspect]
     Indication: HEPATITIS C
     Dosage: 180 ?G, QW
     Route: 058
     Dates: start: 20130828

REACTIONS (4)
  - Diarrhoea [Not Recovered/Not Resolved]
  - Skin reaction [Not Recovered/Not Resolved]
  - Drug ineffective [Unknown]
  - Rash [Not Recovered/Not Resolved]
